FAERS Safety Report 18392735 (Version 3)
Quarter: 2020Q4

REPORT INFORMATION
  Report Type: Spontaneous
  Country: JO (occurrence: JO)
  Receive Date: 20201016
  Receipt Date: 20201117
  Transmission Date: 20210114
  Serious: Yes (Hospitalization)
  Sender: FDA-Public Use
  Company Number: JO-NOVOPROD-758586

PATIENT
  Age: 11 Year
  Sex: Female
  Weight: 56 kg

DRUGS (1)
  1. NOVORAPID [Suspect]
     Active Substance: INSULIN ASPART
     Indication: PRODUCT USED FOR UNKNOWN INDICATION
     Dosage: UNK
     Route: 058

REACTIONS (3)
  - Diabetic ketoacidosis [Recovered/Resolved]
  - Off label use [Unknown]
  - Drug ineffective [Unknown]
